FAERS Safety Report 7805415-7 (Version None)
Quarter: 2011Q4

REPORT INFORMATION
  Report Type: 
  Country: None (occurrence: None)
  Receive Date: 20111010
  Receipt Date: 20111005
  Transmission Date: 20120403
  Serious: Yes (Hospitalization, Other)
  Sender: FDA-Public Use
  Company Number: BR-ABBOTT-11P-020-0857448-00

PATIENT
  Sex: Female
  Weight: 64 kg

DRUGS (2)
  1. UNSPECIFIED CORTICOSTEROID [Concomitant]
     Indication: BLINDNESS
     Dosage: 60 MG OR 80 MG PER DAY
     Dates: start: 20110501
  2. HUMIRA [Suspect]
     Indication: RHEUMATOID ARTHRITIS
     Route: 058
     Dates: start: 20110718, end: 20110801

REACTIONS (1)
  - MENINGITIS BACTERIAL [None]
